FAERS Safety Report 10461969 (Version 1)
Quarter: 2014Q3

REPORT INFORMATION
  Report Type: Spontaneous
  Country: US (occurrence: None)
  Receive Date: 20140917
  Receipt Date: 20140917
  Transmission Date: 20150326
  Serious: Yes (Hospitalization)
  Sender: FDA-Public Use
  Company Number: None

PATIENT
  Age: 60 Year
  Sex: Male
  Weight: 80 kg

DRUGS (2)
  1. CISPLATIN. [Suspect]
     Active Substance: CISPLATIN
     Indication: CHRONIC MYELOID LEUKAEMIA
     Route: 042
     Dates: start: 20140702, end: 20140702
  2. GEMCITABINE [Suspect]
     Active Substance: GEMCITABINE\GEMCITABINE HYDROCHLORIDE
     Indication: CHRONIC MYELOID LEUKAEMIA
     Dosage: 2070 MG, EVERY DAY, IV?
     Route: 042
     Dates: start: 20140702, end: 20140709

REACTIONS (3)
  - Pancytopenia [None]
  - Thrombocytopenia [None]
  - Haemoptysis [None]

NARRATIVE: CASE EVENT DATE: 20140712
